FAERS Safety Report 25592463 (Version 3)
Quarter: 2025Q3

REPORT INFORMATION
  Report Type: Spontaneous
  Country: KR (occurrence: KR)
  Receive Date: 20250722
  Receipt Date: 20250910
  Transmission Date: 20251020
  Serious: No
  Sender: PFIZER
  Company Number: KR-PFIZER INC-202500146485

PATIENT

DRUGS (1)
  1. GENOTROPIN [Suspect]
     Active Substance: SOMATROPIN

REACTIONS (3)
  - Device information output issue [Unknown]
  - Device leakage [Unknown]
  - Device power source issue [Unknown]
